FAERS Safety Report 5234609-2 (Version None)
Quarter: 2007Q1

REPORT INFORMATION
  Report Type: 
  Country: None (occurrence: None)
  Receive Date: 20070209
  Receipt Date: 20070129
  Transmission Date: 20070707
  Serious: Yes (Other)
  Sender: FDA-Public Use
  Company Number: HQWYE474105FEB07

PATIENT
  Sex: Female

DRUGS (1)
  1. EFFEXOR XR [Suspect]
     Dosage: 75 MG, FREQUENCY UNKNOWN
     Route: 064
     Dates: start: 20030101

REACTIONS (2)
  - POOR WEIGHT GAIN NEONATAL [None]
  - SMALL FOR DATES BABY [None]
